FAERS Safety Report 4305625-X (Version None)
Quarter: 2004Q1

REPORT INFORMATION
  Report Type: 
  Country: None (occurrence: None)
  Receive Date: 20040226
  Receipt Date: 20031217
  Transmission Date: 20041129
  Serious: No
  Sender: FDA-Public Use
  Company Number: US-BRISTOL-MYERS SQUIBB COMPANY-12460218

PATIENT
  Sex: Male

DRUGS (1)
  1. ABILIFY [Suspect]
     Indication: ANTISOCIAL BEHAVIOUR
     Dosage: INITIATED AT 2.5 MG/DAY FOR 1 WEEK
     Route: 048
     Dates: start: 20031201

REACTIONS (1)
  - MUSCLE TIGHTNESS [None]
